FAERS Safety Report 7378083-9 (Version None)
Quarter: 2011Q1

REPORT INFORMATION
  Report Type: 
  Country: None (occurrence: None)
  Receive Date: 20110317
  Receipt Date: 20110307
  Transmission Date: 20110831
  Serious: No
  Sender: FDA-Public Use
  Company Number: US-1185234

PATIENT
  Sex: Female

DRUGS (2)
  1. VIGAMOX [Suspect]
     Dosage: (OPHTHALMIC)
     Route: 047
  2. NEVANAC [Suspect]
     Dosage: (OPHTHALMIC)
     Route: 047

REACTIONS (2)
  - HEART RATE INCREASED [None]
  - DYSPNOEA [None]
